FAERS Safety Report 9520203 (Version 1)
Quarter: 2013Q3

REPORT INFORMATION
  Report Type: Spontaneous
  Country: US (occurrence: US)
  Receive Date: 20130912
  Receipt Date: 20130912
  Transmission Date: 20140515
  Serious: No
  Sender: FDA-Public Use
  Company Number: US-MUTUAL PHARMACEUTICAL COMPANY, INC.-BCTM20120050

PATIENT
  Sex: Male

DRUGS (1)
  1. SULFAMETHOXAZOLE AND TRIMETHOPRIM DS [Suspect]
     Indication: IMMUNODEFICIENCY
     Route: 048
     Dates: start: 2011

REACTIONS (2)
  - Dysgeusia [Recovering/Resolving]
  - Decreased appetite [Recovering/Resolving]
